FAERS Safety Report 7985148-7 (Version None)
Quarter: 2011Q4

REPORT INFORMATION
  Report Type: 
  Country: None (occurrence: None)
  Receive Date: 20111216
  Receipt Date: 20111214
  Transmission Date: 20120403
  Serious: No
  Sender: FDA-Public Use
  Company Number: PHEH2011US010218

PATIENT
  Age: 39 Year
  Sex: Female

DRUGS (5)
  1. LEXAPRO [Concomitant]
     Indication: ANXIETY
     Dosage: 10 MG, QD
     Route: 048
  2. LEXAPRO [Concomitant]
     Indication: DEPRESSION
  3. TASIGNA [Suspect]
     Dosage: 150 MG, BID
     Route: 048
     Dates: start: 20111201
  4. TASIGNA [Suspect]
     Dosage: 300 MG, BID
     Dates: end: 20111123
  5. FIORICET [Concomitant]
     Dosage: UNK UKN, UNK
     Route: 048

REACTIONS (2)
  - HEADACHE [None]
  - CONSTIPATION [None]
